FAERS Safety Report 5827346-4 (Version None)
Quarter: 2008Q3

REPORT INFORMATION
  Report Type: 
  Country: None (occurrence: None)
  Receive Date: 20080724
  Receipt Date: 20080714
  Transmission Date: 20090109
  Serious: Yes (Other)
  Sender: FDA-Public Use
  Company Number: 2008AP000241

PATIENT
  Age: 31 Year
  Sex: Female

DRUGS (9)
  1. PAROXETINE HCL [Suspect]
     Dosage: SEE IMAGE
     Dates: start: 20060418, end: 20070517
  2. PAROXETINE HCL [Suspect]
     Dosage: SEE IMAGE
     Dates: start: 20070717, end: 20080516
  3. PAROXETINE HCL [Suspect]
     Dosage: SEE IMAGE
     Dates: start: 19990424
  4. PAROXETINE HCL [Suspect]
     Dosage: SEE IMAGE
     Dates: start: 19990424
  5. PAROXETINE HCL [Suspect]
     Dosage: SEE IMAGE
     Dates: start: 19990601
  6. PAROXETINE HCL [Suspect]
     Dosage: SEE IMAGE
     Dates: start: 20050101
  7. PAROXETINE HCL [Suspect]
     Dosage: SEE IMAGE
     Dates: start: 20051004
  8. PAROXETINE HCL [Suspect]
     Dosage: SEE IMAGE
     Dates: start: 20070711
  9. ENDOCRINE THERAPY (ENDOCRINE THERAPY) [Concomitant]

REACTIONS (23)
  - AGGRESSION [None]
  - ANGER [None]
  - ANHEDONIA [None]
  - BACK PAIN [None]
  - BRUXISM [None]
  - CONVULSION [None]
  - CRYING [None]
  - DEPRESSED MOOD [None]
  - DRUG WITHDRAWAL SYNDROME [None]
  - DYSPNOEA [None]
  - EMOTIONAL DISTRESS [None]
  - MALAISE [None]
  - MEMORY IMPAIRMENT [None]
  - MENSTRUATION IRREGULAR [None]
  - MOOD SWINGS [None]
  - MUSCLE TIGHTNESS [None]
  - MUSCLE TWITCHING [None]
  - PALPITATIONS [None]
  - PANIC ATTACK [None]
  - PAROSMIA [None]
  - SOMNOLENCE [None]
  - SUICIDAL IDEATION [None]
  - TINNITUS [None]
